FAERS Safety Report 7874780-7 (Version None)
Quarter: 2011Q4

REPORT INFORMATION
  Report Type: 
  Country: None (occurrence: None)
  Receive Date: 20111031
  Receipt Date: 20111018
  Transmission Date: 20120403
  Serious: Yes (Other)
  Sender: FDA-Public Use
  Company Number: US-ELI_LILLY_AND_COMPANY-US201110005139

PATIENT
  Sex: Female

DRUGS (3)
  1. LANTUS [Concomitant]
     Dosage: UNK
  2. HUMALOG [Suspect]
     Indication: DIABETES MELLITUS
     Dosage: SLIDING SCALE
     Route: 065
  3. HUMALOG [Suspect]
     Dosage: SLIDING SCALE
     Route: 065

REACTIONS (2)
  - GLAUCOMA [None]
  - VISUAL IMPAIRMENT [None]
